FAERS Safety Report 5499391-2 (Version None)
Quarter: 2007Q4

REPORT INFORMATION
  Report Type: 
  Country: None (occurrence: None)
  Receive Date: 20071026
  Receipt Date: 20071017
  Transmission Date: 20080405
  Serious: Yes (Other)
  Sender: FDA-Public Use
  Company Number: B0465823A

PATIENT
  Age: 58 Year
  Sex: Male

DRUGS (4)
  1. ARIXTRA [Suspect]
     Indication: THROMBOSIS PROPHYLAXIS
     Dosage: 7.5MG PER DAY
     Route: 058
     Dates: start: 20061201, end: 20070522
  2. NEURONTIN [Concomitant]
     Indication: EPILEPSY
     Dosage: 300MG SIX TIMES PER DAY
     Route: 048
     Dates: start: 20060901, end: 20070517
  3. FLUANXOL [Concomitant]
     Indication: AGGRESSION
     Dosage: 4DROP THREE TIMES PER DAY
     Route: 048
     Dates: start: 20070301, end: 20070517
  4. CORTICOIDS [Concomitant]

REACTIONS (2)
  - HEPATOCELLULAR DAMAGE [None]
  - TRANSAMINASES INCREASED [None]
